FAERS Safety Report 5596847-9 (Version None)
Quarter: 2008Q1

REPORT INFORMATION
  Report Type: 
  Country: None (occurrence: None)
  Receive Date: 20080119
  Receipt Date: 20080111
  Transmission Date: 20080703
  Serious: Yes (Other)
  Sender: FDA-Public Use
  Company Number: GB-PFIZER INC-2008004347

PATIENT
  Age: 45 Year
  Sex: Male
  Weight: 92 kg

DRUGS (3)
  1. GENOTROPIN [Suspect]
     Indication: HYPOPITUITARISM
     Route: 058
  2. TESTOSTERONE [Concomitant]
     Route: 058
  3. DDAVP (NEEDS NO REFRIGERATION) [Concomitant]
     Dosage: DAILY DOSE:200MCG
     Route: 045

REACTIONS (2)
  - CRANIOPHARYNGIOMA [None]
  - NEOPLASM PROGRESSION [None]
